FAERS Safety Report 8373257-2 (Version None)
Quarter: 2012Q2

REPORT INFORMATION
  Report Type: 
  Country: None (occurrence: None)
  Receive Date: 20120521
  Receipt Date: 20120511
  Transmission Date: 20120825
  Serious: Yes (Death, Hospitalization)
  Sender: FDA-Public Use
  Company Number: CA-MILLENNIUM PHARMACEUTICALS, INC.-2012-02226

PATIENT
  Sex: Male
  Weight: 87.5 kg

DRUGS (2)
  1. ANTIBIOTICS [Concomitant]
     Indication: SEPTIC SHOCK
     Dosage: UNK
     Dates: start: 20120227
  2. VELCADE [Suspect]
     Indication: MANTLE CELL LYMPHOMA
     Dosage: 2.7 MG, CYCLIC
     Route: 042
     Dates: start: 20120306

REACTIONS (3)
  - SEPSIS [None]
  - RENAL FAILURE ACUTE [None]
  - MANTLE CELL LYMPHOMA [None]
